FAERS Safety Report 19399029 (Version 2)
Quarter: 2021Q3

REPORT INFORMATION
  Report Type: Report from Study
  Country: None (occurrence: GB)
  Receive Date: 20210610
  Receipt Date: 20210812
  Transmission Date: 20211014
  Serious: Yes (Life-Threatening, Hospitalization)
  Sender: FDA-Public Use
  Company Number: GB-GLOBAL BLOOD THERAPEUTICS INC-GB-GBT-21-01749

PATIENT
  Age: 10 Year
  Sex: Male
  Weight: 36.8 kg

DRUGS (7)
  1. VOXELOTOR. [Suspect]
     Active Substance: VOXELOTOR
     Indication: SICKLE CELL DISEASE
     Route: 048
     Dates: start: 20200706
  2. HYDROXYCARBAMIDE [Concomitant]
     Active Substance: HYDROXYUREA
     Indication: SICKLE CELL DISEASE
     Route: 048
     Dates: start: 20190731
  3. PENICILLIN V [Concomitant]
     Active Substance: PENICILLIN V
     Indication: SICKLE CELL DISEASE
     Route: 048
  4. FOLIC ACID. [Concomitant]
     Active Substance: FOLIC ACID
     Indication: SICKLE CELL DISEASE
     Route: 048
  5. PENICILLIN V [Concomitant]
     Active Substance: PENICILLIN V
     Route: 048
  6. MACROGOL [Concomitant]
     Active Substance: POLYETHYLENE GLYCOLS
     Indication: CONSTIPATION
     Route: 048
     Dates: start: 20190722
  7. VOXELOTOR. [Suspect]
     Active Substance: VOXELOTOR
     Route: 048
     Dates: start: 20210523

REACTIONS (2)
  - Sickle cell anaemia with crisis [Recovered/Resolved]
  - Hypersplenism [Recovered/Resolved]

NARRATIVE: CASE EVENT DATE: 20210523
